FAERS Safety Report 16525719 (Version 3)
Quarter: 2020Q2

REPORT INFORMATION
  Report Type: Report from Study
  Country: US (occurrence: US)
  Receive Date: 20190703
  Receipt Date: 20200420
  Transmission Date: 20200713
  Serious: No
  Sender: FDA-Public Use
  Company Number: US-SA-2019SA178650

PATIENT
  Age: 47 Year
  Sex: Male

DRUGS (1)
  1. TERIFLUNOMIDE. [Suspect]
     Active Substance: TERIFLUNOMIDE
     Indication: MULTIPLE SCLEROSIS
     Dosage: 14 MG, QD
     Route: 048
     Dates: start: 20180226

REACTIONS (5)
  - Mobility decreased [Not Recovered/Not Resolved]
  - Product dose omission [Unknown]
  - Ulcer [Unknown]
  - Intentional product misuse [Unknown]
  - Hypertonic bladder [Unknown]

NARRATIVE: CASE EVENT DATE: 2019
